FAERS Safety Report 8655276 (Version 3)
Quarter: 2013Q3

REPORT INFORMATION
  Report Type: Spontaneous
  Country: US (occurrence: US)
  Receive Date: 20120709
  Receipt Date: 20130726
  Transmission Date: 20140515
  Serious: Yes (Hospitalization, Other)
  Sender: FDA-Public Use
  Company Number: US-ASTRAZENECA-2012SE44614

PATIENT
  Age: 49 Year
  Sex: Male
  Weight: 109.8 kg

DRUGS (10)
  1. NEXIUM [Suspect]
     Indication: GASTROOESOPHAGEAL REFLUX DISEASE
     Route: 048
     Dates: start: 2001, end: 201211
  2. NEXIUM [Suspect]
     Indication: GASTROOESOPHAGEAL REFLUX DISEASE
     Route: 048
     Dates: start: 2013
  3. PEPCID [Concomitant]
  4. HALCION [Concomitant]
     Indication: INSOMNIA
     Dosage: HS
     Route: 048
     Dates: start: 2012, end: 2012
  5. XANAX [Concomitant]
     Indication: INSOMNIA
     Route: 048
     Dates: start: 20130711
  6. LUNESTA [Concomitant]
     Indication: INSOMNIA
     Dosage: HS
     Route: 048
  7. VICODIN [Concomitant]
     Indication: BACK PAIN
     Route: 048
     Dates: start: 2002, end: 2005
  8. PERCOCET [Concomitant]
     Indication: BACK PAIN
     Route: 048
     Dates: start: 2002, end: 2005
  9. MORPHINE [Concomitant]
     Indication: BACK PAIN
     Route: 048
     Dates: start: 2002, end: 2005
  10. OXYCONTIN [Concomitant]
     Indication: BACK PAIN
     Route: 048
     Dates: start: 2002, end: 2005

REACTIONS (19)
  - Nerve injury [Unknown]
  - Burning sensation [Unknown]
  - Hypoaesthesia [Unknown]
  - Accident [Unknown]
  - Cholelithiasis [Recovered/Resolved]
  - Brain injury [Not Recovered/Not Resolved]
  - Memory impairment [Not Recovered/Not Resolved]
  - Arterial disorder [Recovered/Resolved with Sequelae]
  - Multiple fractures [Recovered/Resolved with Sequelae]
  - Kidney infection [Recovered/Resolved]
  - Regurgitation [Unknown]
  - Gastrooesophageal reflux disease [Recovered/Resolved]
  - Back pain [Not Recovered/Not Resolved]
  - Pain in extremity [Not Recovered/Not Resolved]
  - Vomiting [Recovered/Resolved]
  - Flatulence [Recovered/Resolved]
  - Nausea [Unknown]
  - Intentional drug misuse [Unknown]
  - Drug dose omission [Unknown]
